FAERS Safety Report 7624361-5 (Version None)
Quarter: 2011Q3

REPORT INFORMATION
  Report Type: 
  Country: None (occurrence: None)
  Receive Date: 20110720
  Receipt Date: 20110712
  Transmission Date: 20111222
  Serious: Yes (Hospitalization, Other)
  Sender: FDA-Public Use
  Company Number: PL-BAYER-2011-022106

PATIENT
  Age: 66 Year
  Sex: Female
  Weight: 73 kg

DRUGS (17)
  1. ALFADIOL [Concomitant]
     Indication: HYPOPARATHYROIDISM SECONDARY
     Dosage: TOTAL DAILY DOSE 2UG
     Route: 048
     Dates: start: 20091115
  2. KALIPOZ-PROLONGATUM [Concomitant]
     Indication: HYPERTENSION
     Dosage: TOTAL DAILY DOSE 0.391G
     Route: 048
     Dates: start: 20090101
  3. SEREVENT [Concomitant]
     Indication: ASTHMA
     Dosage: TOTAL DAILY DOSE 100 UG, ROUTE: INHALATION
     Route: 055
     Dates: start: 20110211
  4. EUTHYROX [Concomitant]
     Indication: POST PROCEDURAL HYPOTHYROIDISM
     Dosage: TOTAL DAILY DOSE 200 UG
     Route: 048
     Dates: start: 20101217
  5. MAGNEZIN [Concomitant]
     Indication: HYPOPARATHYROIDISM SECONDARY
     Dosage: TOTAL DAILY DOSE 0.4 G
     Route: 048
     Dates: start: 20100101
  6. AMLODIPINE [Concomitant]
     Indication: HYPERTENSION
     Dosage: TOTAL DAILY DOSE 2.5 MG
     Route: 048
     Dates: start: 20110211
  7. MOLSIDOMINA [Concomitant]
     Indication: HYPERTENSION
     Dosage: TOTAL DAILY DOSE 4 MG
     Route: 048
     Dates: start: 20070101
  8. ACETAMINOPHEN [Concomitant]
     Indication: PAIN
     Dosage: TOTAL DAILY DOSE 500 MG
     Route: 048
     Dates: start: 20101004, end: 20101004
  9. CALPEROS [Concomitant]
     Indication: HYPOPARATHYROIDISM SECONDARY
     Dosage: TOTAL DAILY DOSE 4 G
     Route: 048
     Dates: start: 20101208
  10. PYRIDOXAL PHOSPHATE [Concomitant]
     Indication: PALMAR-PLANTAR ERYTHRODYSAESTHESIA SYNDROME
     Dosage: TOTAL DAILY DOSE 200 MG
     Route: 048
     Dates: start: 20101217
  11. BISOPROLOL FUMARATE [Concomitant]
     Indication: HYPERTENSION
     Dosage: TOTAL DAILY DOSE 1.25 MG
     Route: 048
     Dates: start: 20101217
  12. COSOPT [Concomitant]
     Indication: GLAUCOMA
     Dosage: TOTAL DAILY DOSE 2 DROPS
     Route: 047
     Dates: start: 20101217
  13. VALSARTAN [Concomitant]
     Indication: HYPERTENSION
     Dosage: TOTAL DAILY DOSE 80 MG
     Route: 048
     Dates: start: 20101207
  14. SYLIMAROL [Concomitant]
     Indication: MEDICAL DIET
     Dosage: TOTAL DAILY DOSE 70 MG
     Route: 048
     Dates: start: 20090101
  15. SORAFENIB (RAF KINASE INHIBITOR) [Suspect]
     Indication: THYROID CANCER METASTATIC
     Dosage: TOTAL DAILY DOSE 600 MG(400MG+200MG)
     Route: 048
     Dates: start: 20110310
  16. PREDUCTAL [Concomitant]
     Indication: HYPERTENSION
     Dosage: TOTAL DAILY DOSE 70 MG
     Route: 048
     Dates: start: 20070101
  17. ACARD [Concomitant]
     Indication: HYPERTENSION
     Dosage: TOTAL DAILY DOSE 75 MG
     Route: 048
     Dates: start: 20050101

REACTIONS (1)
  - SYNCOPE [None]
